FAERS Safety Report 22374719 (Version 1)
Quarter: 2023Q2

REPORT INFORMATION
  Report Type: Spontaneous
  Country: CA (occurrence: CA)
  Receive Date: 20230526
  Receipt Date: 20230526
  Transmission Date: 20230722
  Serious: Yes (Life-Threatening, Hospitalization, Other)
  Sender: FDA-Public Use
  Company Number: CA-HLS-202301098

PATIENT
  Age: 37 Year
  Sex: Male

DRUGS (2)
  1. CLOZARIL [Suspect]
     Active Substance: CLOZAPINE
     Dosage: TABLETS DOSAGE FORM
     Route: 048
  2. INVEGA TRINZA PRE-FILLED SYRINGE [Concomitant]
     Dosage: SUSPENSION (EXTENDED-RELEASE) DOSAGE FORM
     Route: 065

REACTIONS (3)
  - C-reactive protein increased [Unknown]
  - Myocarditis [Unknown]
  - Troponin increased [Unknown]
